FAERS Safety Report 18513215 (Version 1)
Quarter: 2020Q4

REPORT INFORMATION
  Report Type: Report from Study
  Country: US (occurrence: US)
  Receive Date: 20201117
  Receipt Date: 20201117
  Transmission Date: 20210114
  Serious: Yes (Hospitalization)
  Sender: FDA-Public Use
  Company Number: US-UCBSA-2019016705

PATIENT
  Age: 67 Year
  Sex: Male
  Weight: 77 kg

DRUGS (7)
  1. LACOSAMIDE. [Suspect]
     Active Substance: LACOSAMIDE
     Dosage: CUT THE 200 MG TABLETS IN HALF
     Route: 048
     Dates: start: 20191010, end: 20191022
  2. KEPPRA [Suspect]
     Active Substance: LEVETIRACETAM
     Dosage: DOUBLED DOSE OF KEPPRA TO MAKE UP MISSED DOSE OF VIMPAT
     Dates: start: 20201103
  3. LACOSAMIDE. [Suspect]
     Active Substance: LACOSAMIDE
     Dosage: 200 MILLIGRAM, 2X/DAY (BID)
  4. LACOSAMIDE. [Suspect]
     Active Substance: LACOSAMIDE
     Indication: PARTIAL SEIZURES
     Dosage: HALF DOSES OF VIMPAT 200MG
     Route: 048
     Dates: start: 20190412
  5. LACOSAMIDE. [Suspect]
     Active Substance: LACOSAMIDE
     Indication: EPILEPSY
     Dosage: 200 MILLIGRAM, 2X/DAY (BID)
     Route: 048
     Dates: start: 201901, end: 20190411
  6. KEPPRA [Suspect]
     Active Substance: LEVETIRACETAM
     Indication: PRODUCT USED FOR UNKNOWN INDICATION
     Dosage: INITIAL DOSE
     Dates: start: 201801
  7. LACOSAMIDE. [Suspect]
     Active Substance: LACOSAMIDE
     Dosage: PATIENT WAS CUTTING 200 MG TABLET INTO HALF AND WAS TAKING TWICE DAILY
     Dates: start: 20201103

REACTIONS (7)
  - Intentional product misuse [Unknown]
  - Alcoholism [Not Recovered/Not Resolved]
  - Hypertension [Not Recovered/Not Resolved]
  - Drug ineffective [Unknown]
  - Product dose omission issue [Unknown]
  - Seizure [Not Recovered/Not Resolved]
  - Adverse reaction [Not Recovered/Not Resolved]

NARRATIVE: CASE EVENT DATE: 20190215
